FAERS Safety Report 20580042 (Version 1)
Quarter: 2022Q1

REPORT INFORMATION
  Report Type: Report from Study
  Country: US (occurrence: US)
  Receive Date: 20220310
  Receipt Date: 20220310
  Transmission Date: 20220423
  Serious: Yes (Other)
  Sender: FDA-Public Use
  Company Number: US-BIOGEN-2022BI01103328

PATIENT
  Sex: Female

DRUGS (2)
  1. VUMERITY [Suspect]
     Active Substance: DIROXIMEL FUMARATE
     Indication: Multiple sclerosis
     Route: 048
     Dates: start: 20210716
  2. VUMERITY [Suspect]
     Active Substance: DIROXIMEL FUMARATE
     Route: 048

REACTIONS (8)
  - Deafness transitory [Recovered/Resolved]
  - Blindness transient [Recovered/Resolved]
  - Gait disturbance [Not Recovered/Not Resolved]
  - Exposure to communicable disease [Not Recovered/Not Resolved]
  - Hemiparesis [Recovered/Resolved]
  - Peroneal nerve palsy [Not Recovered/Not Resolved]
  - Dizziness [Recovered/Resolved]
  - Vomiting [Recovered/Resolved]
